FAERS Safety Report 10269162 (Version 1)
Quarter: 2014Q2

REPORT INFORMATION
  Report Type: Spontaneous
  Country: US (occurrence: US)
  Receive Date: 20140630
  Receipt Date: 20140630
  Transmission Date: 20141212
  Serious: No
  Sender: FDA-Public Use
  Company Number: US-SA-2014SA029880

PATIENT
  Age: 59 Year
  Sex: Male
  Weight: 168.5 kg

DRUGS (2)
  1. HECTOROL [Suspect]
     Indication: HYPERPARATHYROIDISM
     Dosage: HECTORAL 2 MCG/ML- STRENGTH
     Route: 042
     Dates: start: 20140110, end: 20140110
  2. HECTOROL [Suspect]
     Indication: HYPERPARATHYROIDISM
     Route: 042
     Dates: start: 20140111, end: 20140115

REACTIONS (1)
  - Muscle spasms [Recovered/Resolved]
